FAERS Safety Report 15549703 (Version 2)
Quarter: 2019Q1

REPORT INFORMATION
  Report Type: Spontaneous
  Country: US (occurrence: US)
  Receive Date: 20181025
  Receipt Date: 20190108
  Transmission Date: 20190417
  Serious: Yes (Other)
  Sender: FDA-Public Use
  Company Number: US-BAYER-2018-198527

PATIENT
  Age: 28 Year
  Sex: Female
  Weight: 103 kg

DRUGS (2)
  1. MIRENA [Suspect]
     Active Substance: LEVONORGESTREL
  2. MIRENA [Suspect]
     Active Substance: LEVONORGESTREL
     Indication: CONTRACEPTION
     Dosage: 20 MCG/24HR, CONT
     Route: 015
     Dates: start: 20181017, end: 20181017

REACTIONS (2)
  - Complication of device insertion [None]
  - Embedded device [Recovered/Resolved]

NARRATIVE: CASE EVENT DATE: 20181017
